FAERS Safety Report 10339578 (Version 3)
Quarter: 2014Q3

REPORT INFORMATION
  Report Type: Report from Study
  Country: JP (occurrence: JP)
  Receive Date: 20140724
  Receipt Date: 20140801
  Transmission Date: 20150326
  Serious: Yes (Hospitalization)
  Sender: FDA-Public Use
  Company Number: JP-SHIRE-JP201404120

PATIENT
  Age: 73 Year
  Sex: Female
  Weight: 38 kg

DRUGS (12)
  1. LULICON [Concomitant]
     Indication: DERMATOPHYTOSIS
     Dosage: 1 %, UNK
     Dates: start: 20140523
  2. ANTEBATE [Concomitant]
     Active Substance: BETAMETHASONE DIPROPIONATE
     Indication: CARDIOVASCULAR INSUFFICIENCY
     Dosage: 0.05 %, UNK
     Route: 062
     Dates: start: 20140423
  3. 422 (ANAGRELIDE) [Suspect]
     Active Substance: ANAGRELIDE
     Dosage: 1 MG, UNK
     Route: 048
     Dates: start: 20120222, end: 20121024
  4. ZOLPIDEM TARTRATE. [Concomitant]
     Active Substance: ZOLPIDEM TARTRATE
     Indication: INSOMNIA
     Dosage: 5 MG, UNK
     Route: 048
     Dates: start: 20140514
  5. DIART [Concomitant]
     Active Substance: AZOSEMIDE
     Indication: CARDIAC FAILURE CONGESTIVE
     Dosage: UNK
     Route: 048
  6. LULICON [Concomitant]
     Indication: DERMATOPHYTOSIS
     Dosage: 1 %, UNK
     Dates: start: 20140523
  7. 422 (ANAGRELIDE) [Suspect]
     Active Substance: ANAGRELIDE
     Indication: ESSENTIAL THROMBOCYTHAEMIA
     Dosage: 0.5 MG, UNK
     Route: 048
     Dates: start: 20140514
  8. LOSARTAN POTASSIUM. [Concomitant]
     Active Substance: LOSARTAN POTASSIUM
     Indication: CARDIAC FAILURE
     Dosage: 25 MG, UNK
     Dates: start: 20140605
  9. 422 (ANAGRELIDE) [Suspect]
     Active Substance: ANAGRELIDE
     Dosage: 1 MG, UNK
     Route: 048
     Dates: start: 20111026, end: 20120206
  10. ARTIST [Concomitant]
     Active Substance: CARVEDILOL
     Indication: CARDIAC FAILURE
     Dosage: 2.5 MG, UNK
     Dates: start: 20140529
  11. 422 (ANAGRELIDE) [Suspect]
     Active Substance: ANAGRELIDE
     Dosage: 1 MG, UNK
     Route: 048
     Dates: start: 20121024, end: 20140514
  12. JUVELA                             /00110502/ [Concomitant]
     Indication: CARDIOVASCULAR INSUFFICIENCY
     Dosage: 50 MG, UNK
     Dates: start: 20140115

REACTIONS (1)
  - Coronary artery stenosis [Recovered/Resolved]

NARRATIVE: CASE EVENT DATE: 20140717
